FAERS Safety Report 8961066 (Version 1)
Quarter: 2012Q4

REPORT INFORMATION
  Report Type: 
  Country: JP (occurrence: JP)
  Receive Date: 20121212
  Receipt Date: 20121212
  Transmission Date: 20130627
  Serious: Yes (Other)
  Sender: FDA-Public Use
  Company Number: JP-WATSON-2012-21751

PATIENT
  Age: 37 Year
  Sex: Female

DRUGS (1)
  1. ATENOLOL [Suspect]
     Indication: VENTRICULAR TACHYCARDIA
     Dosage: 100 mg, daily
     Route: 065

REACTIONS (6)
  - Electrocardiogram QT prolonged [Recovered/Resolved]
  - Bradycardia [Recovered/Resolved]
  - Ventricular arrhythmia [Recovered/Resolved]
  - Condition aggravated [Recovered/Resolved]
  - Ventricular extrasystoles [None]
  - Ventricular tachycardia [None]
